FAERS Safety Report 20347452 (Version 3)
Quarter: 2022Q1

REPORT INFORMATION
  Report Type: Spontaneous
  Country: US (occurrence: US)
  Receive Date: 20220118
  Receipt Date: 20220127
  Transmission Date: 20220423
  Serious: Yes (Death)
  Sender: FDA-Public Use
  Company Number: US-NOVARTISTESTPH-NVSC2022US010485

PATIENT
  Age: 55 Year
  Sex: Male

DRUGS (4)
  1. RANITIDINE [Suspect]
     Active Substance: RANITIDINE
     Indication: Gastrooesophageal reflux disease
     Dosage: 150 MG, BID
     Route: 048
     Dates: end: 201905
  2. RANITIDINE [Suspect]
     Active Substance: RANITIDINE
     Indication: Diverticulitis
  3. RANITIDINE [Suspect]
     Active Substance: RANITIDINE
     Indication: Gastrooesophageal reflux disease
     Dosage: 150 MG, BID
     Route: 048
     Dates: end: 201905
  4. RANITIDINE [Suspect]
     Active Substance: RANITIDINE
     Indication: Diverticulitis

REACTIONS (4)
  - Thyroid cancer [Fatal]
  - Prostate cancer [Fatal]
  - Brain neoplasm malignant [Fatal]
  - Product use in unapproved indication [Unknown]

NARRATIVE: CASE EVENT DATE: 20011101
